FAERS Safety Report 12285019 (Version 1)
Quarter: 2016Q2

REPORT INFORMATION
  Report Type: Spontaneous
  Country: NL (occurrence: NL)
  Receive Date: 20160420
  Receipt Date: 20160420
  Transmission Date: 20160815
  Serious: Yes (Life-Threatening)
  Sender: FDA-Public Use
  Company Number: NL-TEVA-653810ACC

PATIENT
  Sex: Female
  Weight: 52 kg

DRUGS (5)
  1. PARACETAMOL TABLET  500MG [Concomitant]
     Active Substance: ACETAMINOPHEN
     Dosage: 1000 MILLIGRAM DAILY; ONCE DAILY 2 PIECE(S
     Route: 048
     Dates: start: 2013
  2. IBUPROFEN. [Suspect]
     Active Substance: IBUPROFEN
     Indication: BACK PAIN
     Dosage: 800 MILLIGRAM DAILY; TWICE DAILY 1 PIECE(S)
     Route: 048
     Dates: start: 2013
  3. OMEPRAZOLE. [Suspect]
     Active Substance: OMEPRAZOLE
     Indication: PROPHYLAXIS AGAINST GASTROINTESTINAL ULCER
     Dosage: 20 MILLIGRAM DAILY; ONCE DAILY 1 PIECE(S), PROLONGED-RELEASE CAPSULE
     Route: 048
     Dates: start: 2013
  4. PARACETAMOL/CODEINE TABLET 500/10MG [Concomitant]
     Dosage: 2 DOSAGE FORMS DAILY; ONCE DAILY 2 PIECE(S)
     Route: 048
     Dates: start: 2013
  5. DIAZEPAM TABLET  5MG [Concomitant]
     Dosage: 5 MILLIGRAM DAILY; ONCE DAILY 1 PIECE(S)
     Route: 048
     Dates: start: 2013

REACTIONS (2)
  - Suicidal ideation [Recovered/Resolved]
  - Depression [Recovered/Resolved]

NARRATIVE: CASE EVENT DATE: 2013
